FAERS Safety Report 8383366 (Version 4)
Quarter: 2013Q4

REPORT INFORMATION
  Report Type: Spontaneous
  Country: US (occurrence: US)
  Receive Date: 20120201
  Receipt Date: 20131014
  Transmission Date: 20140711
  Serious: Yes (Other)
  Sender: FDA-Public Use
  Company Number: US-GLAXOSMITHKLINE-A0963306A

PATIENT
  Age: 67 Year
  Sex: Male
  Weight: 69.5 kg

DRUGS (2)
  1. FLOLAN [Suspect]
     Indication: PULMONARY HYPERTENSION
     Dosage: 22.5NGKM CONTINUOUS
     Route: 042
     Dates: start: 20080310
  2. TEGADERM [Suspect]
     Indication: PRODUCT USED FOR UNKNOWN INDICATION
     Route: 065

REACTIONS (5)
  - Pancreatitis [Recovered/Resolved]
  - Feeling hot [Recovered/Resolved]
  - Hyperhidrosis [Recovered/Resolved]
  - Application site erythema [Recovered/Resolved]
  - Application site pruritus [Recovered/Resolved]
